FAERS Safety Report 5132933-5 (Version None)
Quarter: 2006Q4

REPORT INFORMATION
  Report Type: 
  Country: None (occurrence: None)
  Receive Date: 20061017
  Receipt Date: 20061005
  Transmission Date: 20070319
  Serious: Yes (Hospitalization)
  Sender: FDA-Public Use
  Company Number: 863#3#2006-00013

PATIENT
  Age: 94 Year
  Sex: Male

DRUGS (5)
  1. IDROLAX (MACROGOL) [Suspect]
     Route: 048
  2. LORAZEPAM [Suspect]
     Dosage: 1 MG (1 MG 1 IN 1 DAY(S)
     Route: 048
  3. NICARDIPINE HYDROCHLORIDE [Suspect]
     Dosage: 40 MG (40 MG (1 IN 1 DAY(S))
     Route: 048
  4. FOROSEMIDE [Suspect]
     Dosage: 40 MG 1 IN 1 DAY
     Route: 048
  5. TAMSULOSIN HCL [Suspect]
     Dosage: .4 MG 1 IN 1 DAY
     Route: 048

REACTIONS (2)
  - ANAEMIA [None]
  - THROMBOCYTOPENIC PURPURA [None]
